FAERS Safety Report 7864187-0 (Version None)
Quarter: 2011Q4

REPORT INFORMATION
  Report Type: 
  Country: None (occurrence: None)
  Receive Date: 20111028
  Receipt Date: 20111020
  Transmission Date: 20120403
  Serious: Yes (Hospitalization)
  Sender: FDA-Public Use
  Company Number: DE-PFIZER INC-2011006424

PATIENT
  Age: 55 Year
  Sex: Male
  Weight: 75 kg

DRUGS (7)
  1. FLUOROURACIL [Suspect]
     Indication: COLORECTAL CANCER METASTATIC
     Dosage: 780 MG, DAY 1 AND 2 /14
     Route: 042
     Dates: start: 20101117, end: 20101229
  2. LEUCOVORIN CALCIUM [Suspect]
     Indication: COLORECTAL CANCER METASTATIC
     Dosage: 780 MG, DAY 1 /14
     Route: 042
     Dates: start: 20101117, end: 20101229
  3. ONDANSETRON [Concomitant]
     Dosage: 8 MG, DAY 1 /14
     Route: 042
  4. CETUXIMAB [Suspect]
     Indication: COLORECTAL CANCER METASTATIC
     Dosage: 488 MG, DAY 1 AND 8 /14
     Route: 042
     Dates: start: 20101117, end: 20101229
  5. IRINOTECAN HCL [Suspect]
     Indication: COLORECTAL CANCER METASTATIC
     Dosage: 351 MG, DAY 1 /14
     Route: 042
     Dates: start: 20101117, end: 20101229
  6. DEXAMETHASONE [Concomitant]
     Dosage: 8 MG, DAY 1 AND 8/14
     Route: 048
     Dates: start: 20101117
  7. DOXYCYCLINE [Concomitant]
     Dosage: 100 MG, DAILY
     Route: 048
     Dates: start: 20101117

REACTIONS (3)
  - DIARRHOEA [None]
  - GENERAL PHYSICAL HEALTH DETERIORATION [None]
  - RENAL FAILURE ACUTE [None]
